FAERS Safety Report 15838526 (Version 4)
Quarter: 2020Q2

REPORT INFORMATION
  Report Type: Spontaneous
  Country: FR (occurrence: FR)
  Receive Date: 20190117
  Receipt Date: 20200421
  Transmission Date: 20200713
  Serious: Yes (Hospitalization, Disabling, Other)
  Sender: FDA-Public Use
  Company Number: FR-NOVOPROD-642249

PATIENT
  Sex: Female
  Weight: 60 kg

DRUGS (19)
  1. ESTRADIOL. [Suspect]
     Active Substance: ESTRADIOL
     Dosage: 1 DF, QD (21 DAYS PER MONTH)
     Route: 048
     Dates: start: 20090705, end: 20170920
  2. CYPROTERONE ACETATE;ETHINYLESTRADIOL [Suspect]
     Active Substance: CYPROTERONE ACETATE\ETHINYL ESTRADIOL
     Indication: ALOPECIA
     Dosage: 2 MG
     Route: 048
     Dates: start: 20161124
  3. OROMONE [Concomitant]
     Active Substance: ESTRADIOL
     Dosage: UNK
     Route: 065
     Dates: start: 2009
  4. CYPROTERONE ACETATE;ETHINYLESTRADIOL [Suspect]
     Active Substance: CYPROTERONE ACETATE\ETHINYL ESTRADIOL
     Indication: ACNE
     Dosage: 2 MG
     Route: 048
     Dates: start: 1997
  5. ANDROCUR [Suspect]
     Active Substance: CYPROTERONE ACETATE
     Dosage: 0.5 DF, QD, 21 DAYS PER MONTH
     Route: 048
     Dates: start: 20110830
  6. ANDROCUR [Suspect]
     Active Substance: CYPROTERONE ACETATE
     Dosage: 0.5 DF, QD (21 DAYS PER MONTH)
     Route: 048
     Dates: end: 20130816
  7. ANDROCUR [Suspect]
     Active Substance: CYPROTERONE ACETATE
     Indication: ACNE
     Dosage: 1/2 TABLET FOR 21 DAYS PER MONTH
     Route: 048
     Dates: start: 20090705, end: 20100820
  8. ANDROCUR [Suspect]
     Active Substance: CYPROTERONE ACETATE
     Indication: CONTRACEPTION
     Dosage: 0.5 DF, QD (21 DAYS PER MONTH)
     Route: 048
     Dates: start: 20100820
  9. OROMONE [Concomitant]
     Active Substance: ESTRADIOL
     Indication: CONTRACEPTION
     Dosage: 2 MG
     Route: 065
     Dates: start: 2007
  10. ANDROCUR [Suspect]
     Active Substance: CYPROTERONE ACETATE
     Dosage: 0.5 DF, QD (21 DAYS PER MONTH)
     Route: 048
     Dates: start: 20100715
  11. ANDROCUR [Suspect]
     Active Substance: CYPROTERONE ACETATE
     Dosage: 0.5 DF, QD ? TABLET/D FOR 21 DAYS PER MONTH
     Route: 048
     Dates: start: 20130816, end: 20140818
  12. ANDROCUR [Suspect]
     Active Substance: CYPROTERONE ACETATE
     Dosage: 0.5 DOSAGE FORMS DAILY
     Route: 048
     Dates: start: 20161124
  13. OROMONE [Concomitant]
     Active Substance: ESTRADIOL
     Dosage: UNK MG
     Route: 065
     Dates: start: 201312
  14. ESTRADIOL. [Suspect]
     Active Substance: ESTRADIOL
     Indication: PRODUCT USED FOR UNKNOWN INDICATION
     Dosage: UNK
     Route: 048
     Dates: start: 20070528, end: 2009
  15. ANDROCUR [Suspect]
     Active Substance: CYPROTERONE ACETATE
     Indication: ALOPECIA
     Dosage: 0.5 DF?  TABLET/D FOR 21 DAYS PER MONTH
     Route: 048
     Dates: start: 20070528, end: 2009
  16. ANDROCUR [Suspect]
     Active Substance: CYPROTERONE ACETATE
     Dosage: 0.5 DF, QD, 21 DAYS PER MONTH
     Route: 048
     Dates: start: 20101221, end: 20110705
  17. ANDROCUR [Suspect]
     Active Substance: CYPROTERONE ACETATE
     Dosage: 0.5 DF, QD, 21 DAYS PER MONTH
     Route: 048
     Dates: start: 20110705, end: 20110830
  18. ANDROCUR [Suspect]
     Active Substance: CYPROTERONE ACETATE
     Dosage: 0.5 DF, QD; FOR 21DAYS PER MONTH
     Route: 048
     Dates: start: 20140818, end: 20170510
  19. ANDROCUR [Suspect]
     Active Substance: CYPROTERONE ACETATE
     Dosage: 0.5 DF?  TABLET/D FOR 21 DAYS PER MONTH
     Route: 048
     Dates: start: 20170510, end: 20170920

REACTIONS (54)
  - Balance disorder [Not Recovered/Not Resolved]
  - Formication [Recovered/Resolved with Sequelae]
  - Joint range of motion decreased [Recovered/Resolved with Sequelae]
  - Balance disorder [Recovered/Resolved with Sequelae]
  - Disorientation [Unknown]
  - Facial paralysis [Not Recovered/Not Resolved]
  - Neck pain [Unknown]
  - Meningioma [Not Recovered/Not Resolved]
  - Cognitive disorder [Unknown]
  - Language disorder [Unknown]
  - Asthenia [Recovered/Resolved with Sequelae]
  - Paraesthesia [Not Recovered/Not Resolved]
  - Hemiparaesthesia [Not Recovered/Not Resolved]
  - Hypoaesthesia [Unknown]
  - Headache [Unknown]
  - Product dose omission [Unknown]
  - Nervous system disorder [Unknown]
  - Intracranial mass [Unknown]
  - Dyskinesia [Unknown]
  - Aphasia [Unknown]
  - Diplopia [Not Recovered/Not Resolved]
  - Hemiplegia [Not Recovered/Not Resolved]
  - Cognitive disorder [Recovered/Resolved with Sequelae]
  - Gait disturbance [Not Recovered/Not Resolved]
  - Fatigue [Not Recovered/Not Resolved]
  - Mobility decreased [Recovered/Resolved with Sequelae]
  - Hemiparesis [Unknown]
  - Eye haematoma [Unknown]
  - Disturbance in attention [Unknown]
  - Memory impairment [Unknown]
  - Pain [Unknown]
  - Visual impairment [Unknown]
  - Hemiplegia [Unknown]
  - Facial paralysis [Not Recovered/Not Resolved]
  - Brain herniation [Unknown]
  - Speech disorder [Recovered/Resolved with Sequelae]
  - Product use in unapproved indication [Unknown]
  - Off label use [Unknown]
  - Executive dysfunction [Recovered/Resolved with Sequelae]
  - Language disorder [Recovered/Resolved with Sequelae]
  - Muscular weakness [Not Recovered/Not Resolved]
  - Memory impairment [Recovered/Resolved with Sequelae]
  - Paraesthesia [Recovered/Resolved with Sequelae]
  - Fatigue [Recovered/Resolved with Sequelae]
  - Coordination abnormal [Not Recovered/Not Resolved]
  - Muscular weakness [Not Recovered/Not Resolved]
  - Hemiparaesthesia [Unknown]
  - Partial seizures [Unknown]
  - Eye haematoma [Unknown]
  - Loss of personal independence in daily activities [Unknown]
  - Weight increased [Not Recovered/Not Resolved]
  - Dysarthria [Not Recovered/Not Resolved]
  - Disturbance in attention [Recovered/Resolved with Sequelae]
  - Aphasia [Unknown]

NARRATIVE: CASE EVENT DATE: 2017
